FAERS Safety Report 17892829 (Version 1)
Quarter: 2020Q2

REPORT INFORMATION
  Report Type: Spontaneous
  Country: DE (occurrence: DE)
  Receive Date: 20200613
  Receipt Date: 20200613
  Transmission Date: 20200714
  Serious: Yes (Life-Threatening, Hospitalization, Other)
  Sender: FDA-Public Use
  Company Number: DE-DRREDDYS-GER/GER/20/0123924

PATIENT
  Age: 79 Year
  Sex: Male

DRUGS (2)
  1. METOCLOPRAMID [Concomitant]
     Active Substance: METOCLOPRAMIDE
     Indication: PRODUCT USED FOR UNKNOWN INDICATION
     Dosage: NK MG, BEI BEDARF
  2. AZACITIDINE. [Suspect]
     Active Substance: AZACITIDINE
     Indication: PRODUCT USED FOR UNKNOWN INDICATION
     Dosage: NK MG, LETZTE 15042020

REACTIONS (7)
  - Hyperhidrosis [Unknown]
  - Chills [Unknown]
  - Dizziness [Unknown]
  - General physical health deterioration [Unknown]
  - Condition aggravated [Unknown]
  - Sepsis [Unknown]
  - Pyrexia [Unknown]
